FAERS Safety Report 21919447 (Version 3)
Quarter: 2023Q4

REPORT INFORMATION
  Report Type: Spontaneous
  Country: JP (occurrence: None)
  Receive Date: 20230127
  Receipt Date: 20231003
  Transmission Date: 20240110
  Serious: Yes (Life-Threatening, Hospitalization)
  Sender: FDA-Public Use
  Company Number: 2023A020696

PATIENT
  Age: 75 Year
  Sex: Male
  Weight: 57 kg

DRUGS (14)
  1. EVUSHELD [Suspect]
     Active Substance: CILGAVIMAB\TIXAGEVIMAB
     Indication: COVID-19 prophylaxis
     Dosage: 600 MG FREQUENCY UNKNOWN UNKNOWN
     Route: 030
     Dates: start: 20230120, end: 20230120
  2. POLIVY [Concomitant]
     Active Substance: POLATUZUMAB VEDOTIN-PIIQ
     Indication: Lymphoma
     Dosage: 95.0MG UNKNOWN
     Route: 041
     Dates: start: 20221209, end: 20230420
  3. RITUXIMAB [Concomitant]
     Active Substance: RITUXIMAB
     Indication: Lymphoma
     Dosage: 600.0MG UNKNOWN
     Route: 041
     Dates: start: 20221212, end: 20230518
  4. ZOVIRAX [Concomitant]
     Active Substance: ACYCLOVIR
     Indication: Lymphoma
     Route: 048
     Dates: start: 20221209
  5. SULFAMETHOXAZOLE\TRIMETHOPRIM [Concomitant]
     Active Substance: SULFAMETHOXAZOLE\TRIMETHOPRIM
     Indication: Lymphoma
     Dosage: DOSE UNKNOWN
     Route: 048
     Dates: start: 20221214
  6. METHYLCOBALAMIN [Concomitant]
     Active Substance: METHYLCOBALAMIN
     Indication: Neuropathy peripheral
     Route: 048
     Dates: start: 20221124
  7. LANSOPRAZOLE [Concomitant]
     Active Substance: LANSOPRAZOLE
     Indication: Lymphoma
     Route: 048
     Dates: start: 20221111
  8. HERBALS [Concomitant]
     Active Substance: HERBALS
     Indication: Neuropathy peripheral
     Route: 048
     Dates: start: 20230120
  9. CALONAL [Concomitant]
     Active Substance: ACETAMINOPHEN
     Indication: Lymphoma
     Dosage: PREMEDICATION OF POLIVY (POLATUZUMAB VEDOTIN)
     Route: 048
     Dates: start: 20221209, end: 20230518
  10. FEXOFENADINE HYDROCHLORIDE [Concomitant]
     Active Substance: FEXOFENADINE HYDROCHLORIDE
     Indication: Lymphoma
     Dosage: PREMEDICATION OF POLIVY (POLATUZUMAB VEDOTIN)
     Route: 048
     Dates: start: 20221209, end: 20230518
  11. PALONOSETRON [Concomitant]
     Active Substance: PALONOSETRON
     Indication: Lymphoma
     Route: 041
     Dates: start: 20221209, end: 20230420
  12. DEXAMETHASONE SODIUM PHOSPHATE [Concomitant]
     Active Substance: DEXAMETHASONE SODIUM PHOSPHATE
     Indication: Lymphoma
     Route: 041
     Dates: start: 20221209, end: 20230420
  13. DEXAMETHASONE SODIUM PHOSPHATE [Concomitant]
     Active Substance: DEXAMETHASONE SODIUM PHOSPHATE
     Indication: Lymphoma
     Route: 041
     Dates: start: 20221210, end: 20230421
  14. DECADRON [Concomitant]
     Active Substance: DEXAMETHASONE
     Indication: Lymphoma
     Route: 048
     Dates: start: 20221211, end: 20230422

REACTIONS (2)
  - Loss of consciousness [Recovered/Resolved]
  - Seizure [Recovered/Resolved]

NARRATIVE: CASE EVENT DATE: 20230120
